FAERS Safety Report 11255388 (Version 1)
Quarter: 2015Q3

REPORT INFORMATION
  Report Type: Spontaneous
  Country: US (occurrence: US)
  Receive Date: 20150709
  Receipt Date: 20150709
  Transmission Date: 20151125
  Serious: Yes (Other)
  Sender: FDA-Public Use
  Company Number: US-MPIJNJ-2012-02547

PATIENT
  Age: 76 Year
  Sex: Female

DRUGS (1)
  1. VELCADE [Suspect]
     Active Substance: BORTEZOMIB
     Indication: PLASMA CELL MYELOMA
     Dosage: UNK UNK, 1/WEEK
     Dates: start: 2009, end: 20120424

REACTIONS (2)
  - Conjunctivitis [Recovered/Resolved with Sequelae]
  - Herpes zoster [Unknown]

NARRATIVE: CASE EVENT DATE: 20120501
